FAERS Safety Report 13401274 (Version 1)
Quarter: 2017Q2

REPORT INFORMATION
  Report Type: Spontaneous
  Country: US (occurrence: US)
  Receive Date: 20170404
  Receipt Date: 20170404
  Transmission Date: 20170830
  Serious: No
  Sender: FDA-Public Use
  Company Number: GXBR2016US003283

PATIENT
  Sex: Female
  Weight: 44.44 kg

DRUGS (2)
  1. METHADONE [Concomitant]
     Active Substance: METHADONE HYDROCHLORIDE
     Indication: ANORECTAL DISCOMFORT
     Dosage: 5 MG, PRN
     Route: 048
  2. LIDOCAINE. [Suspect]
     Active Substance: LIDOCAINE
     Indication: ANORECTAL DISCOMFORT
     Dosage: UNK DF, UNK
     Route: 054

REACTIONS (1)
  - Drug ineffective [Not Recovered/Not Resolved]
